FAERS Safety Report 21640603 (Version 2)
Quarter: 2023Q1

REPORT INFORMATION
  Report Type: Spontaneous
  Country: GB (occurrence: GB)
  Receive Date: 20221124
  Receipt Date: 20230103
  Transmission Date: 20230417
  Serious: Yes (Other)
  Sender: FDA-Public Use
  Company Number: GB-CELLTRION INC.-2022GB019607

PATIENT

DRUGS (1)
  1. INFLIXIMAB [Suspect]
     Active Substance: INFLIXIMAB
     Indication: Crohn^s disease
     Dosage: 120 MG, Q2WEEKS
     Route: 058
     Dates: start: 202208

REACTIONS (4)
  - Pneumonia [Unknown]
  - SARS-CoV-2 test positive [Recovered/Resolved]
  - Lower respiratory tract infection [Unknown]
  - Malaise [Not Recovered/Not Resolved]
